FAERS Safety Report 8743093 (Version 2)
Quarter: 2012Q4

REPORT INFORMATION
  Report Type: 
  Country: JP (occurrence: JP)
  Receive Date: 20120824
  Receipt Date: 20120904
  Transmission Date: 20130627
  Serious: Yes (Hospitalization, Other)
  Sender: FDA-Public Use
  Company Number: JP-ASTRAZENECA-2012SE60491

PATIENT
  Sex: Male

DRUGS (2)
  1. ECARD COMBINATION TABLETS HD [Suspect]
     Route: 048
  2. AMLODIN [Concomitant]
     Route: 048

REACTIONS (7)
  - Convulsion [Recovered/Resolved]
  - Cardiac failure [Unknown]
  - Rhabdomyolysis [Unknown]
  - Loss of consciousness [Recovered/Resolved]
  - Hyponatraemia [Unknown]
  - Urticaria [Unknown]
  - Nephritis [Unknown]
